FAERS Safety Report 8022712-3 (Version None)
Quarter: 2012Q1

REPORT INFORMATION
  Report Type: 
  Country: None (occurrence: None)
  Receive Date: 20120104
  Receipt Date: 20111228
  Transmission Date: 20120608
  Serious: Yes (Hospitalization, Other)
  Sender: FDA-Public Use
  Company Number: JP-CEPHALON-2011004990

PATIENT
  Age: 63 Year
  Sex: Female
  Weight: 47 kg

DRUGS (8)
  1. CLOPIDROGEL SULPHATE [Concomitant]
  2. GRANISETRON HCL [Concomitant]
     Dates: start: 20110427, end: 20110725
  3. ALLOPURINOL [Concomitant]
     Dates: start: 20110213, end: 20110216
  4. BENDAMUSTINE HCL [Suspect]
     Indication: MANTLE CELL LYMPHOMA
     Route: 042
     Dates: start: 20110214, end: 20110215
  5. BENDAMUSTINE HCL [Suspect]
     Route: 042
     Dates: start: 20110427
  6. MOSAPRIDE CITRATE HYDRATE [Concomitant]
  7. ROSUVASTATIN CALCIUM [Concomitant]
  8. RAMOSETRON HYDROCHLORIDE [Concomitant]
     Dates: start: 20110214, end: 20110215

REACTIONS (14)
  - THROMBOCYTOPENIA [None]
  - PLATELET COUNT DECREASED [None]
  - WEIGHT DECREASED [None]
  - WHITE BLOOD CELL COUNT DECREASED [None]
  - PNEUMONIA [None]
  - CYTOMEGALOVIRUS CHORIORETINITIS [None]
  - NEUTROPHIL COUNT DECREASED [None]
  - ANAEMIA [None]
  - UPPER RESPIRATORY TRACT INFLAMMATION [None]
  - FEBRILE NEUTROPENIA [None]
  - HYPOALBUMINAEMIA [None]
  - C-REACTIVE PROTEIN INCREASED [None]
  - LYMPHOCYTE COUNT DECREASED [None]
  - HYPOKALAEMIA [None]
